FAERS Safety Report 9311252 (Version 4)
Quarter: 2015Q2

REPORT INFORMATION
  Report Type: Spontaneous
  Country: US (occurrence: US)
  Receive Date: 20130528
  Receipt Date: 20150414
  Transmission Date: 20150821
  Serious: Yes (Other)
  Sender: FDA-Public Use
  Company Number: US-PFIZER INC-2013159535

PATIENT
  Age: 39 Year
  Sex: Male

DRUGS (4)
  1. DILANTIN [Suspect]
     Active Substance: PHENYTOIN
     Indication: SEIZURE
     Dosage: 100 MG, 3X/DAY
     Route: 048
     Dates: start: 20100518, end: 20100629
  2. DILANTIN [Suspect]
     Active Substance: PHENYTOIN
     Dosage: 300 MG, 1X/DAY
     Route: 048
     Dates: start: 20100630, end: 20110110
  3. DILANTIN [Suspect]
     Active Substance: PHENYTOIN
     Dosage: 300 MG, 1X/DAY
     Route: 048
     Dates: start: 20110210, end: 20120821
  4. DILANTIN [Suspect]
     Active Substance: PHENYTOIN
     Dosage: 200 MG, 2X/DAY
     Route: 048
     Dates: start: 20110111, end: 20110209

REACTIONS (2)
  - Stevens-Johnson syndrome [Unknown]
  - Cerebral atrophy [Unknown]

NARRATIVE: CASE EVENT DATE: 20110222
